FAERS Safety Report 4877735-X (Version None)
Quarter: 2006Q1

REPORT INFORMATION
  Report Type: 
  Country: None (occurrence: None)
  Receive Date: 20060109
  Receipt Date: 20051227
  Transmission Date: 20060701
  Serious: Yes (Other)
  Sender: FDA-Public Use
  Company Number: 2006000248

PATIENT
  Age: 75 Year
  Sex: Male
  Weight: 70.3075 kg

DRUGS (5)
  1. LIPITOR [Suspect]
     Indication: BLOOD CHOLESTEROL INCREASED
     Dosage: 20 MG (40 MG, 1/2 DAILY), ORAL
     Route: 048
     Dates: start: 20040101
  2. COREG [Concomitant]
  3. QUINAPRIL [Concomitant]
  4. ASPIRIN [Concomitant]
  5. TUMS (CALCIUM CARBONATE) [Concomitant]

REACTIONS (2)
  - CARDIAC DISORDER [None]
  - CARDIAC MURMUR [None]
